FAERS Safety Report 9109880 (Version 2)
Quarter: 2013Q1

REPORT INFORMATION
  Report Type: Spontaneous
  Country: US (occurrence: US)
  Receive Date: 20130222
  Receipt Date: 20130315
  Transmission Date: 20140127
  Serious: No
  Sender: FDA-Public Use
  Company Number: US-PFIZER INC-2013063811

PATIENT
  Age: 78 Year
  Sex: Female
  Weight: 90.7 kg

DRUGS (3)
  1. TOVIAZ [Suspect]
     Indication: NOCTURIA
     Dosage: 8 MG, 1X/DAY
     Dates: start: 20130213
  2. BENAZEPRIL [Concomitant]
     Indication: CARDIAC DISORDER
     Dosage: 10 MG, 1X/DAY
  3. FLUOXETINE HYDROCHLORIDE [Concomitant]
     Indication: DEPRESSION
     Dosage: 20 MG, 1X/DAY

REACTIONS (1)
  - Drug ineffective [Unknown]
